FAERS Safety Report 4515116-9 (Version None)
Quarter: 2004Q4

REPORT INFORMATION
  Report Type: 
  Country: None (occurrence: None)
  Receive Date: 20041129
  Receipt Date: 20041129
  Transmission Date: 20050328
  Serious: No
  Sender: FDA-Public Use
  Company Number: None

PATIENT
  Age: 72 Year
  Sex: Female

DRUGS (1)
  1. LEVAQUIN [Suspect]
     Dosage: 1 TABLET DAY
     Dates: start: 20040918, end: 20040928

REACTIONS (2)
  - ATRIAL TACHYCARDIA [None]
  - DRUG HYPERSENSITIVITY [None]
